FAERS Safety Report 7137329-2 (Version None)
Quarter: 2010Q4

REPORT INFORMATION
  Report Type: 
  Country: None (occurrence: None)
  Receive Date: 20101206
  Receipt Date: 20101123
  Transmission Date: 20110411
  Serious: Yes (Hospitalization)
  Sender: FDA-Public Use
  Company Number: US-CELGENEUS-163-21880-10112730

PATIENT
  Sex: Male

DRUGS (4)
  1. REVLIMID [Suspect]
     Indication: MULTIPLE MYELOMA
     Route: 048
     Dates: start: 20100501
  2. AMBIEN [Concomitant]
     Indication: INSOMNIA
     Route: 048
  3. BACTRIM DS [Concomitant]
     Route: 065
  4. ACYCLOVIR [Concomitant]
     Route: 048

REACTIONS (3)
  - CATHETER SITE HAEMORRHAGE [None]
  - HEADACHE [None]
  - MENTAL STATUS CHANGES [None]
